FAERS Safety Report 16624384 (Version 4)
Quarter: 2020Q2

REPORT INFORMATION
  Report Type: Report from Study
  Country: CA (occurrence: CA)
  Receive Date: 20190724
  Receipt Date: 20200626
  Transmission Date: 20200713
  Serious: Yes (Other)
  Sender: FDA-Public Use
  Company Number: PHHY2019CA082015

PATIENT
  Age: 49 Year
  Sex: Female

DRUGS (7)
  1. COSENTYX [Suspect]
     Active Substance: SECUKINUMAB
     Dosage: 300 MG, Q3W
     Route: 058
  2. COSENTYX [Suspect]
     Active Substance: SECUKINUMAB
     Indication: PSORIASIS
     Dosage: 300 MG, QW (SENOREADY PEN)
     Route: 058
     Dates: start: 20190326
  3. COSENTYX [Suspect]
     Active Substance: SECUKINUMAB
     Dosage: 300 MG, QW (SENOREADY PEN)
     Route: 058
     Dates: start: 20190402
  4. ACITRETIN. [Concomitant]
     Active Substance: ACITRETIN
     Indication: PRODUCT USED FOR UNKNOWN INDICATION
     Dosage: 35 MG
     Route: 065
     Dates: start: 201812
  5. COSENTYX [Suspect]
     Active Substance: SECUKINUMAB
     Dosage: 300 MG, QMO
     Route: 058
  6. DOVOBET [Concomitant]
     Active Substance: BETAMETHASONE\CALCIPOTRIENE
     Indication: PRODUCT USED FOR UNKNOWN INDICATION
     Dosage: UNK
     Route: 061
  7. COSENTYX [Suspect]
     Active Substance: SECUKINUMAB
     Dosage: 300 MG, QMO
     Route: 058

REACTIONS (13)
  - Blood cholesterol increased [Unknown]
  - Skin tightness [Unknown]
  - Diarrhoea [Recovered/Resolved]
  - Aphonia [Unknown]
  - Alopecia [Unknown]
  - Peripheral swelling [Not Recovered/Not Resolved]
  - Throat irritation [Unknown]
  - Inappropriate schedule of product administration [Unknown]
  - Pruritus [Unknown]
  - Diabetes mellitus [Unknown]
  - Skin plaque [Unknown]
  - Rash [Unknown]
  - Psoriasis [Not Recovered/Not Resolved]

NARRATIVE: CASE EVENT DATE: 20190331
